FAERS Safety Report 6583728-7 (Version None)
Quarter: 2010Q1

REPORT INFORMATION
  Report Type: 
  Country: None (occurrence: None)
  Receive Date: 20100216
  Receipt Date: 20100206
  Transmission Date: 20100710
  Serious: Yes (Hospitalization, Disabling, Other)
  Sender: FDA-Public Use
  Company Number: BE-ROCHE-682478

PATIENT
  Sex: Female
  Weight: 74 kg

DRUGS (5)
  1. TOCILIZUMAB [Suspect]
     Indication: RHEUMATOID ARTHRITIS
     Route: 042
     Dates: start: 20090618, end: 20091001
  2. ORENCIA [Suspect]
     Indication: RHEUMATOID ARTHRITIS
     Route: 042
     Dates: start: 20091001
  3. PREDNISOLONE [Concomitant]
     Indication: RHEUMATOID ARTHRITIS
     Route: 048
     Dates: start: 20060621
  4. PREDNISOLONE [Concomitant]
     Route: 048
     Dates: start: 20091216, end: 20091222
  5. PREDNISOLONE [Concomitant]
     Route: 048
     Dates: start: 20100123

REACTIONS (4)
  - DRUG INEFFECTIVE [None]
  - PAIN IN EXTREMITY [None]
  - POLYNEUROPATHY [None]
  - VASCULITIS [None]
